FAERS Safety Report 7796771-7 (Version None)
Quarter: 2011Q4

REPORT INFORMATION
  Report Type: 
  Country: None (occurrence: None)
  Receive Date: 20111005
  Receipt Date: 20110930
  Transmission Date: 20120403
  Serious: Yes (Other)
  Sender: FDA-Public Use
  Company Number: US-JNJFOC-20110808269

PATIENT
  Sex: Male

DRUGS (8)
  1. METOPROLOL TARTRATE [Concomitant]
     Indication: BLOOD PRESSURE
     Route: 065
     Dates: start: 20090101
  2. CLOBETASOL PROPIONATE [Concomitant]
     Indication: SKIN DISORDER
     Route: 061
  3. OMEPRAZOLE [Concomitant]
     Indication: DYSPEPSIA
     Route: 048
     Dates: start: 20090101
  4. HUMALOG [Concomitant]
     Indication: DIABETES MELLITUS
     Route: 058
     Dates: start: 20080101
  5. PREDNISONE [Concomitant]
     Indication: SKIN DISORDER
     Route: 048
     Dates: start: 20090101
  6. LEVAQUIN [Suspect]
     Indication: BRONCHITIS
     Route: 048
     Dates: start: 20110324, end: 20110402
  7. LEVOTHYROXINE [Concomitant]
     Indication: THYROID DISORDER
     Route: 065
     Dates: start: 20090101
  8. LEVEMIR [Concomitant]
     Indication: DIABETES MELLITUS
     Dosage: 45 UNITS
     Route: 058
     Dates: start: 20080101

REACTIONS (5)
  - BLOOD PRESSURE INCREASED [None]
  - PAIN IN EXTREMITY [None]
  - DYSPNOEA EXERTIONAL [None]
  - CORONARY ARTERY OCCLUSION [None]
  - RENAL ARTERY STENOSIS [None]
